FAERS Safety Report 23331110 (Version 1)
Quarter: 2023Q4

REPORT INFORMATION
  Report Type: Spontaneous
  Country: US (occurrence: None)
  Receive Date: 20231221
  Receipt Date: 20231221
  Transmission Date: 20240110
  Serious: Yes (Death)
  Sender: FDA-Public Use
  Company Number: None

PATIENT
  Age: 74 Year
  Sex: Male
  Weight: 78 kg

DRUGS (1)
  1. CARVYKTI [Suspect]
     Active Substance: CILTACABTAGENE AUTOLEUCEL
     Indication: Plasma cell myeloma refractory
     Dosage: OTHER FREQUENCY : ONCE;?
     Route: 042
     Dates: start: 20231004, end: 20231004

REACTIONS (2)
  - Sepsis [None]
  - Acute respiratory failure [None]

NARRATIVE: CASE EVENT DATE: 20231214
